FAERS Safety Report 4405279-8 (Version None)
Quarter: 2004Q3

REPORT INFORMATION
  Report Type: 
  Country: None (occurrence: None)
  Receive Date: 20040716
  Receipt Date: 20040629
  Transmission Date: 20050211
  Serious: Yes (Other)
  Sender: FDA-Public Use
  Company Number: PHBS2004ES08985

PATIENT
  Age: 90 Year
  Sex: Male

DRUGS (1)
  1. VISUDYNE [Suspect]
     Indication: NEOVASCULARISATION
     Dosage: 5.1 ML ONCE IV
     Route: 042
     Dates: start: 20040601, end: 20040601

REACTIONS (2)
  - CHOROIDAL HAEMORRHAGE [None]
  - DISEASE PROGRESSION [None]
